FAERS Safety Report 9070947 (Version 1)
Quarter: 2013Q1

REPORT INFORMATION
  Report Type: Spontaneous
  Country: JP (occurrence: JP)
  Receive Date: 20130129
  Receipt Date: 20130129
  Transmission Date: 20140127
  Serious: Yes (Hospitalization)
  Sender: FDA-Public Use
  Company Number: JP-GLAXOSMITHKLINE-B0854589A

PATIENT
  Age: 66 None
  Sex: Male

DRUGS (1)
  1. VALTREX [Suspect]
     Indication: HERPES ZOSTER
     Dosage: 1000MG PER DAY
     Route: 048
     Dates: start: 20121118, end: 20121119

REACTIONS (5)
  - Encephalopathy [Recovering/Resolving]
  - Hallucination [Unknown]
  - Irritability [Unknown]
  - Screaming [Unknown]
  - Psychiatric symptom [Recovering/Resolving]
